FAERS Safety Report 18640549 (Version 1)
Quarter: 2020Q4

REPORT INFORMATION
  Report Type: Spontaneous
  Country: DE (occurrence: DE)
  Receive Date: 20201221
  Receipt Date: 20201221
  Transmission Date: 20210114
  Serious: Yes (Hospitalization)
  Sender: FDA-Public Use
  Company Number: DE-AUROBINDO-AUR-APL-2020-056802

PATIENT
  Sex: Male

DRUGS (4)
  1. CELECOXIB. [Suspect]
     Active Substance: CELECOXIB
     Indication: AXIAL SPONDYLOARTHRITIS
     Dosage: 400 MILLIGRAM, FOUR TIMES A WEEK (1600 MILLIGRAM, EVERY WEEK)
     Route: 065
     Dates: start: 20000101
  2. CELECOXIB. [Suspect]
     Active Substance: CELECOXIB
     Dosage: 4 DOSAGE FORM, EVERY WEEK
     Route: 065
     Dates: start: 20000101
  3. HULIO [Suspect]
     Active Substance: ADALIMUMAB-FKJP
     Dosage: 40 MILLIGRAM, EVERY OTHER WEEK
     Route: 065
     Dates: start: 20200428
  4. HULIO [Suspect]
     Active Substance: ADALIMUMAB-FKJP
     Indication: AXIAL SPONDYLOARTHRITIS
     Dosage: 1 DOSAGE FORM, EVERY OTHER WEEK (USAGE: ONCE EVERY 2 WEEKS (Q2W)
     Route: 065
     Dates: start: 20200428

REACTIONS (2)
  - Oesophagogastric fundoplasty [Recovered/Resolved]
  - Hiatus hernia [Recovered/Resolved]

NARRATIVE: CASE EVENT DATE: 20200915
